FAERS Safety Report 25508107 (Version 2)
Quarter: 2025Q3

REPORT INFORMATION
  Report Type: Spontaneous
  Country: US (occurrence: US)
  Receive Date: 20250703
  Receipt Date: 20250704
  Transmission Date: 20251020
  Serious: No
  Sender: NOBELPHARMA AMERICA, LLC
  Company Number: US-Nobelpharma America, LLC-NPA-2025-01156

PATIENT
  Sex: Female

DRUGS (1)
  1. HYFTOR [Suspect]
     Active Substance: SIROLIMUS
     Indication: Benign neoplasm of skin
     Dosage: APPLY 1 INCH TOPICALLY DAILY TO HER FACIAL ANGIOFIBROMAS
     Route: 061
     Dates: start: 20250513

REACTIONS (5)
  - Abdominal pain [Unknown]
  - Pruritus [Unknown]
  - Product dose omission issue [Unknown]
  - Off label use [Unknown]
  - Off label use [Unknown]
